FAERS Safety Report 14333576 (Version 2)
Quarter: 2018Q2

REPORT INFORMATION
  Report Type: Spontaneous
  Country: FR (occurrence: FR)
  Receive Date: 20171228
  Receipt Date: 20180406
  Transmission Date: 20180711
  Serious: Yes (Life-Threatening, Hospitalization, Other)
  Sender: FDA-Public Use
  Company Number: FR-MYLANLABS-2017M1082513

PATIENT
  Age: 58 Year
  Sex: Female
  Weight: 69.4 kg

DRUGS (6)
  1. PIPERACILLIN/TAZOBACTAM [Suspect]
     Active Substance: PIPERACILLIN SODIUM\TAZOBACTAM SODIUM
     Indication: INFECTION
     Dosage: UNK, TID (PIPERCILLIN+TAZOBACTUM 4G+500MG)
     Route: 042
     Dates: start: 20160607, end: 20160628
  2. ABILIFY [Suspect]
     Active Substance: ARIPIPRAZOLE
     Indication: PRODUCT USED FOR UNKNOWN INDICATION
     Dosage: 2 DF, QD (1 DF = 15 MG)
     Route: 048
  3. MYLAN-CIPROFLOXACIN [Suspect]
     Active Substance: CIPROFLOXACIN
     Indication: INFECTION
     Dosage: 750 MG, BID
     Route: 048
     Dates: start: 20160607
  4. DEPAKOTE [Suspect]
     Active Substance: DIVALPROEX SODIUM
     Indication: PRODUCT USED FOR UNKNOWN INDICATION
     Dosage: 2 DF, QD (1 DF = 500 MG)
     Route: 048
  5. RIFADINE                           /00146901/ [Suspect]
     Active Substance: RIFAMPIN
     Indication: INFECTION
     Dosage: 600 MG, TID
     Route: 042
     Dates: start: 20160607, end: 20160628
  6. PANTOPRAZOLE [Suspect]
     Active Substance: PANTOPRAZOLE
     Indication: PRODUCT USED FOR UNKNOWN INDICATION
     Dosage: UNK
     Route: 065

REACTIONS (5)
  - Scar excision [Unknown]
  - Leukopenia [Not Recovered/Not Resolved]
  - Agranulocytosis [Not Recovered/Not Resolved]
  - Skin infection [Unknown]
  - Osteosynthesis [Unknown]

NARRATIVE: CASE EVENT DATE: 20160615
